FAERS Safety Report 6268254-7 (Version None)
Quarter: 2009Q3

REPORT INFORMATION
  Report Type: 
  Country: None (occurrence: None)
  Receive Date: 20090715
  Receipt Date: 20090529
  Transmission Date: 20100115
  Serious: Yes (Death)
  Sender: FDA-Public Use
  Company Number: US-JNJFOC-20090702308

PATIENT
  Age: 49 Year
  Sex: Male

DRUGS (1)
  1. ITRACONAZOLE [Suspect]
     Indication: HISTOPLASMOSIS DISSEMINATED
     Route: 065

REACTIONS (1)
  - HISTOPLASMOSIS DISSEMINATED [None]
